FAERS Safety Report 16409807 (Version 1)
Quarter: 2019Q2

REPORT INFORMATION
  Report Type: Spontaneous
  Country: US (occurrence: US)
  Receive Date: 20190610
  Receipt Date: 20190610
  Transmission Date: 20190711
  Serious: No
  Sender: FDA-Public Use
  Company Number: US-PFIZER INC-2019240549

PATIENT
  Sex: Male

DRUGS (1)
  1. ADVIL [Suspect]
     Active Substance: IBUPROFEN
     Indication: OSTEOARTHRITIS
     Dosage: BETWEEN 10 AND 20 CAPLETS, THREE TO FOUR AT A TIME

REACTIONS (3)
  - Intentional overdose [Unknown]
  - Therapeutic product effect decreased [Unknown]
  - Renal disorder [Unknown]
